FAERS Safety Report 22270750 (Version 1)
Quarter: 2023Q2

REPORT INFORMATION
  Report Type: Spontaneous
  Country: US (occurrence: None)
  Receive Date: 20230428
  Receipt Date: 20230428
  Transmission Date: 20230722
  Serious: No
  Sender: FDA-Public Use
  Company Number: None

PATIENT
  Sex: Female

DRUGS (1)
  1. KISQALI [Suspect]
     Active Substance: RIBOCICLIB
     Indication: Breast cancer female
     Dosage: TAKE 4 TABLETS BY MOUTH TWICE DAILY ON DAYS 1-14 EVERY 21 DAYS. DO NOT TAKE ON DAYS 15-21??
     Route: 048
     Dates: start: 202302

REACTIONS (1)
  - Drug ineffective [None]
